FAERS Safety Report 6672120-2 (Version None)
Quarter: 2010Q2

REPORT INFORMATION
  Report Type: 
  Country: None (occurrence: None)
  Receive Date: 20100407
  Receipt Date: 20100407
  Transmission Date: 20101027
  Serious: No
  Sender: FDA-Public Use
  Company Number: None

PATIENT

DRUGS (2)
  1. RISPERIDONE [Suspect]
     Dosage: RISPERIDONE 0.5 MG DAILY PO
     Route: 048
  2. ROPINIROLE [Suspect]
     Dosage: ROPINIROLE 0.5 MG DAILY PO

REACTIONS (3)
  - CIRCUMSTANCE OR INFORMATION CAPABLE OF LEADING TO MEDICATION ERROR [None]
  - MEDICATION ERROR [None]
  - PRODUCT NAME CONFUSION [None]
